FAERS Safety Report 12411823 (Version 1)
Quarter: 2016Q2

REPORT INFORMATION
  Report Type: Spontaneous
  Country: US (occurrence: US)
  Receive Date: 20160527
  Receipt Date: 20160527
  Transmission Date: 20160815
  Serious: Yes (Hospitalization)
  Sender: FDA-Public Use
  Company Number: US-RAPTOR PHARMACEUTICALS, INC.-RAP-001050-2016

PATIENT
  Age: 11 Year
  Sex: Female

DRUGS (1)
  1. PROCYSBI DELAYED-RELEASE [Suspect]
     Active Substance: CYSTEAMINE BITARTRATE
     Indication: CYSTINOSIS
     Dosage: 675 MG, BID
     Route: 048
     Dates: start: 201309

REACTIONS (2)
  - Kidney enlargement [Unknown]
  - Pyrexia [Unknown]

NARRATIVE: CASE EVENT DATE: 20160412
